FAERS Safety Report 8328517-8 (Version None)
Quarter: 2012Q2

REPORT INFORMATION
  Report Type: 
  Country: None (occurrence: None)
  Receive Date: 20120502
  Receipt Date: 20120425
  Transmission Date: 20120825
  Serious: Yes (Other)
  Sender: FDA-Public Use
  Company Number: US-PFIZER INC-2010096987

PATIENT
  Sex: Female
  Weight: 70.3 kg

DRUGS (9)
  1. ADDERALL 5 [Concomitant]
     Indication: MULTIPLE SCLEROSIS
     Dosage: UNK
  2. RESTORIL [Concomitant]
     Indication: VERTIGO
     Dosage: UNK
  3. XANAX [Concomitant]
     Indication: VERTIGO
     Dosage: UNK
  4. VALIUM [Concomitant]
     Indication: VERTIGO
     Dosage: UNK
  5. RELPAX [Suspect]
     Indication: MIGRAINE
     Dosage: 40 MG, AS NEEDED
     Route: 048
     Dates: start: 20070101
  6. ALLEGRA-D 12 HOUR [Concomitant]
     Indication: HYPERSENSITIVITY
     Dosage: UNK
  7. ALBUTEROL [Concomitant]
     Dosage: UNK
  8. MONTELUKAST SODIUM [Concomitant]
     Indication: ASTHMA
     Dosage: UNK
  9. SPIRIVA [Concomitant]
     Dosage: 18 UG, 1X/DAY

REACTIONS (3)
  - FIBROMYALGIA [None]
  - PAIN [None]
  - MIGRAINE [None]
